FAERS Safety Report 8357442-1 (Version None)
Quarter: 2012Q2

REPORT INFORMATION
  Report Type: 
  Country: None (occurrence: None)
  Receive Date: 20120511
  Receipt Date: 20120501
  Transmission Date: 20120825
  Serious: Yes (Other)
  Sender: FDA-Public Use
  Company Number: 2012SP016959

PATIENT
  Age: 28 Year
  Sex: Female

DRUGS (2)
  1. PEG-INTRON [Suspect]
     Indication: HEPATITIS C
     Dosage: 150 MG;QW;SC, 120 MG;QW;SC
     Route: 058
     Dates: start: 20120110
  2. RIBAVIRIN [Suspect]
     Indication: HEPATITIS C
     Dosage: 600 MG;BID
     Dates: start: 20120110

REACTIONS (13)
  - SCAB [None]
  - BONE PAIN [None]
  - FATIGUE [None]
  - ORAL PAIN [None]
  - BURNING SENSATION [None]
  - PARANOIA [None]
  - ANXIETY [None]
  - PANIC ATTACK [None]
  - OROPHARYNGEAL PAIN [None]
  - INSOMNIA [None]
  - EAR PAIN [None]
  - GASTROENTERITIS VIRAL [None]
  - DEPRESSION [None]
